FAERS Safety Report 23961630 (Version 2)
Quarter: 2024Q2

REPORT INFORMATION
  Report Type: Spontaneous
  Country: US (occurrence: US)
  Receive Date: 20240611
  Receipt Date: 20240621
  Transmission Date: 20240716
  Serious: Yes (Hospitalization, Other)
  Sender: FDA-Public Use
  Company Number: US-PFIZER INC-PV202400075586

PATIENT
  Age: 77 Year
  Sex: Female

DRUGS (9)
  1. MEROPENEM [Interacting]
     Active Substance: MEROPENEM
     Indication: Drug reaction with eosinophilia and systemic symptoms
     Dosage: UNK
  2. MEROPENEM [Interacting]
     Active Substance: MEROPENEM
     Indication: Otitis externa
  3. MEROPENEM [Interacting]
     Active Substance: MEROPENEM
     Indication: Pseudomonas infection
  4. MEROPENEM [Interacting]
     Active Substance: MEROPENEM
     Indication: Candida infection
  5. FLUCONAZOLE [Interacting]
     Active Substance: FLUCONAZOLE
     Indication: Drug reaction with eosinophilia and systemic symptoms
     Dosage: UNK
  6. FLUCONAZOLE [Interacting]
     Active Substance: FLUCONAZOLE
     Indication: Otitis externa
  7. FLUCONAZOLE [Interacting]
     Active Substance: FLUCONAZOLE
     Indication: Pseudomonas infection
  8. FLUCONAZOLE [Interacting]
     Active Substance: FLUCONAZOLE
     Indication: Candida infection
  9. PREDNISONE [Concomitant]
     Active Substance: PREDNISONE
     Indication: Drug reaction with eosinophilia and systemic symptoms
     Dosage: UNK
     Route: 048

REACTIONS (2)
  - Linear IgA disease [Unknown]
  - Drug interaction [Unknown]
